FAERS Safety Report 6268312-7 (Version None)
Quarter: 2009Q3

REPORT INFORMATION
  Report Type: 
  Country: None (occurrence: None)
  Receive Date: 20090714
  Receipt Date: 20090714
  Transmission Date: 20100115
  Serious: No
  Sender: FDA-Public Use
  Company Number: None

PATIENT
  Sex: Male
  Weight: 86.1834 kg

DRUGS (2)
  1. ZICAM COLD REMEDY NASAL GEL MATRIXX [Suspect]
     Indication: NASOPHARYNGITIS
     Dosage: 2 SPRAYS EVERY 4 HOURS NASAL
     Route: 045
     Dates: start: 20080711, end: 20080712
  2. ZICAM COLD REMEDY NASAL GEL MATRIXX [Suspect]
     Indication: NASOPHARYNGITIS
     Dosage: 2 SPRAYS EVERY 4 HOURS NASAL
     Route: 045
     Dates: start: 20080821, end: 20080821

REACTIONS (5)
  - AGEUSIA [None]
  - ANOSMIA [None]
  - BURNING SENSATION [None]
  - LACRIMATION INCREASED [None]
  - NASOPHARYNGITIS [None]
